FAERS Safety Report 17727718 (Version 1)
Quarter: 2020Q2

REPORT INFORMATION
  Report Type: Spontaneous
  Country: UM (occurrence: UM)
  Receive Date: 20200429
  Receipt Date: 20200429
  Transmission Date: 20200714
  Serious: Yes (Hospitalization)
  Sender: FDA-Public Use
  Company Number: None

PATIENT
  Age: 68 Year
  Sex: Male
  Weight: 96.8 kg

DRUGS (5)
  1. TIOTROPIUM RESPIMAT INHL [Concomitant]
  2. ENZALUTAMIDE, 160MG [Suspect]
     Active Substance: ENZALUTAMIDE
     Indication: PROSTATIC DISORDER
     Dosage: ?          OTHER FREQUENCY:SID;?
     Route: 048
     Dates: start: 20191218, end: 20200218
  3. ALBUTERNOL   INHL [Concomitant]
  4. PEMBROLIZUMAB, 200MG [Suspect]
     Active Substance: PEMBROLIZUMAB
     Indication: PROSTATE CANCER
     Dosage: ?          OTHER FREQUENCY:Q3W;OTHER ROUTE:OTHER?
     Route: 042
     Dates: start: 20191218, end: 20200128
  5. LORATADINE. [Concomitant]
     Active Substance: LORATADINE

REACTIONS (5)
  - Cerebral infarction [None]
  - Cerebral hypoperfusion [None]
  - Dysarthria [None]
  - Confusional state [None]
  - Hemiparesis [None]

NARRATIVE: CASE EVENT DATE: 20200418
